FAERS Safety Report 6721968-4 (Version None)
Quarter: 2010Q2

REPORT INFORMATION
  Report Type: 
  Country: None (occurrence: None)
  Receive Date: 20100512
  Receipt Date: 20100503
  Transmission Date: 20101027
  Serious: Yes (Hospitalization)
  Sender: FDA-Public Use
  Company Number: A0859000A

PATIENT
  Age: 46 Year
  Sex: Male
  Weight: 159.1 kg

DRUGS (1)
  1. AVANDIA [Suspect]
     Indication: DIABETES MELLITUS
     Dosage: 8MG UNKNOWN
     Route: 048

REACTIONS (6)
  - CARDIAC FAILURE CONGESTIVE [None]
  - DEPRESSION [None]
  - DISABILITY [None]
  - LUNG DISORDER [None]
  - OBESITY [None]
  - SLEEP APNOEA SYNDROME [None]
